FAERS Safety Report 5515707-2 (Version None)
Quarter: 2007Q4

REPORT INFORMATION
  Report Type: 
  Country: None (occurrence: None)
  Receive Date: 20071113
  Receipt Date: 20070905
  Transmission Date: 20080405
  Serious: No
  Sender: FDA-Public Use
  Company Number: A0678883A

PATIENT
  Age: 45 Year
  Sex: Male

DRUGS (8)
  1. COREG [Suspect]
     Dosage: 25MG TWICE PER DAY
     Route: 048
     Dates: start: 20070501, end: 20070601
  2. COREG CR [Suspect]
     Dosage: 40MG PER DAY
     Route: 048
     Dates: start: 20070601
  3. SYNTHROID [Concomitant]
  4. ALTACE [Concomitant]
  5. UNKNOWN MEDICATION [Concomitant]
  6. DEMADEX [Concomitant]
  7. ASPIRIN [Concomitant]
  8. PRILOSEC [Concomitant]

REACTIONS (4)
  - DIZZINESS [None]
  - HEADACHE [None]
  - HEART RATE INCREASED [None]
  - HYPOTENSION [None]
